FAERS Safety Report 8391591-7 (Version None)
Quarter: 2012Q1

REPORT INFORMATION
  Report Type: 
  Country: None (occurrence: None)
  Receive Date: 20120323
  Receipt Date: 20110425
  Transmission Date: 20120608
  Serious: Yes (Hospitalization, Other)
  Sender: FDA-Public Use
  Company Number: 163-21880-11033409

PATIENT
  Age: 83 Year
  Sex: Male

DRUGS (12)
  1. LASIX [Concomitant]
  2. NORVASC [Concomitant]
  3. IMMUNE GLOBULIN INTRAVENOUS (HUMAN) [Concomitant]
  4. POTASSIUM GLUCONATE TAB [Concomitant]
  5. IMODIUM [Concomitant]
  6. MULTIVITAMIN [Concomitant]
  7. VITAMIN E [Concomitant]
  8. FLUID (BARIUM SULFATE) [Concomitant]
  9. ZANTAC [Concomitant]
  10. REVLIMID [Suspect]
     Indication: CHRONIC LYMPHOCYTIC LEUKAEMIA
     Dosage: 5 MG, 1 IN 1 D, PO
     Route: 048
     Dates: start: 20110201
  11. GLYBURIDE [Concomitant]
  12. COLACE (DOCUSATE SODIUM) [Concomitant]

REACTIONS (1)
  - HEPATIC FAILURE [None]
